FAERS Safety Report 4687189-4 (Version None)
Quarter: 2005Q2

REPORT INFORMATION
  Report Type: 
  Country: None (occurrence: None)
  Receive Date: 20050606
  Receipt Date: 20050525
  Transmission Date: 20051028
  Serious: Yes (Other)
  Sender: FDA-Public Use
  Company Number: 2005080188

PATIENT
  Sex: Male
  Weight: 70.3075 kg

DRUGS (9)
  1. XANAX [Suspect]
     Indication: ANXIETY
     Dosage: (0.5 MG), ORAL
     Route: 048
     Dates: start: 19940101
  2. LANTUS [Concomitant]
  3. HUMULIN (INSULIN HUMAN, INSULIN ISOPHANE, HUMAN BIOSYNTHETIC) [Concomitant]
  4. SINEMET [Concomitant]
  5. KLONOPIN [Concomitant]
  6. FLORINEF [Concomitant]
  7. HYDROCORTISONE [Concomitant]
  8. CELEXA [Concomitant]
  9. PAXIL CR [Concomitant]

REACTIONS (5)
  - ANXIETY [None]
  - CEREBROVASCULAR ACCIDENT [None]
  - DISEASE RECURRENCE [None]
  - DRUG INEFFECTIVE [None]
  - SOMNOLENCE [None]
